FAERS Safety Report 19808645 (Version 1)
Quarter: 2021Q3

REPORT INFORMATION
  Report Type: Report from Study
  Country: US (occurrence: US)
  Receive Date: 20210908
  Receipt Date: 20210908
  Transmission Date: 20211014
  Serious: Yes (Other)
  Sender: FDA-Public Use
  Company Number: US-TEVA-2021-US-1950019

PATIENT
  Age: 18 Year
  Sex: Male

DRUGS (3)
  1. CYCLOSPORINE. [Suspect]
     Active Substance: CYCLOSPORINE
     Indication: APLASTIC ANAEMIA
     Dosage: 5 MG/KG DAILY; INITIATED AT A DOSE OF 5 MG/KG/DAY WITH SUBSEQUENT DOSE ADJUSTMENT TO MAINTAIN TROUGH
     Route: 048
  2. ELTROMBOPAG [Suspect]
     Active Substance: ELTROMBOPAG
     Indication: APLASTIC ANAEMIA
     Route: 065
  3. HORSE ANTITHYMOCYTE GLOBULIN [Suspect]
     Active Substance: EQUINE THYMOCYTE IMMUNE GLOBULIN
     Indication: APLASTIC ANAEMIA
     Dosage: 40 MG/KG DAILY; SCHEDULED TO BE ADMINISTERED FOR 4 DAYS
     Route: 042

REACTIONS (1)
  - Transaminases increased [Recovered/Resolved]
